FAERS Safety Report 20702668 (Version 1)
Quarter: 2022Q2

REPORT INFORMATION
  Report Type: Spontaneous
  Country: US (occurrence: US)
  Receive Date: 20220412
  Receipt Date: 20220412
  Transmission Date: 20220721
  Serious: No
  Sender: FDA-Public Use
  Company Number: US-PFIZER INC-202101147315

PATIENT
  Age: 61 Year
  Sex: Female
  Weight: 115.65 kg

DRUGS (11)
  1. IBRANCE [Suspect]
     Active Substance: PALBOCICLIB
     Indication: Breast cancer female
     Dosage: 75 MG, CYCLIC [DAILY FOR 21 DAYS ON, 7 DAYS OFF]
     Route: 048
  2. CALTRATE +D3 PLUS MINERALS [Concomitant]
     Dosage: UNK
  3. COBAMAMIDE [Concomitant]
     Active Substance: COBAMAMIDE
     Dosage: 2500 UG
  4. VITAMIN D3 [Concomitant]
     Active Substance: CHOLECALCIFEROL
     Dosage: 10 UG
  5. LEXAPRO [Concomitant]
     Active Substance: ESCITALOPRAM OXALATE
     Dosage: 10 MG
  6. METFORMIN HYDROCHLORIDE [Concomitant]
     Active Substance: METFORMIN HYDROCHLORIDE
     Dosage: 1000 MG
  7. SIMVASTATIN [Concomitant]
     Active Substance: SIMVASTATIN
     Dosage: 10 MG
  8. LISINOPRIL [Concomitant]
     Active Substance: LISINOPRIL
     Dosage: 10 MG
  9. TRAZODONE HCL [Concomitant]
     Active Substance: TRAZODONE HYDROCHLORIDE
     Dosage: 100 MG
  10. XGEVA [Concomitant]
     Active Substance: DENOSUMAB
     Dosage: UNK [120 MG /1.7 VIAL]
  11. FASLODEX [Concomitant]
     Active Substance: FULVESTRANT
     Dosage: UNK [250 MG/5ML SYRINGE]

REACTIONS (1)
  - Hot flush [Recovering/Resolving]
